FAERS Safety Report 14349092 (Version 1)
Quarter: 2018Q1

REPORT INFORMATION
  Report Type: Spontaneous
  Country: FR (occurrence: FR)
  Receive Date: 20180104
  Receipt Date: 20180104
  Transmission Date: 20180509
  Serious: Yes (Other)
  Sender: FDA-Public Use
  Company Number: FR-MERCK KGAA-2038312

PATIENT
  Age: 42 Year
  Sex: Female
  Weight: 68 kg

DRUGS (1)
  1. NOVOTHYROX [Suspect]
     Active Substance: LEVOTHYROXINE SODIUM
     Indication: AUTOIMMUNE THYROIDITIS
     Route: 048
     Dates: end: 20171022

REACTIONS (7)
  - Insomnia [Unknown]
  - Hot flush [Unknown]
  - Diffuse alopecia [Unknown]
  - Depression [Unknown]
  - Blood thyroid stimulating hormone increased [Recovered/Resolved]
  - Disturbance in attention [Unknown]
  - Amnesia [Unknown]

NARRATIVE: CASE EVENT DATE: 20170531
